FAERS Safety Report 5513709-3 (Version None)
Quarter: 2007Q4

REPORT INFORMATION
  Report Type: 
  Country: None (occurrence: None)
  Receive Date: 20071113
  Receipt Date: 20071031
  Transmission Date: 20080405
  Serious: Yes (Other)
  Sender: FDA-Public Use
  Company Number: US-NOVOPROD-268992

PATIENT

DRUGS (2)
  1. LEVEMIR [Suspect]
     Indication: DIABETES MELLITUS
     Dosage: UNKNOWN
     Route: 058
  2. NOVOLOG [Suspect]
     Indication: DIABETES MELLITUS
     Dosage: UNKNOWN
     Route: 058

REACTIONS (1)
  - ANGIOEDEMA [None]
